FAERS Safety Report 9362246 (Version 1)
Quarter: 2013Q2

REPORT INFORMATION
  Report Type: Spontaneous
  Country: US (occurrence: US)
  Receive Date: 20130622
  Receipt Date: 20130622
  Transmission Date: 20140414
  Serious: No
  Sender: FDA-Public Use
  Company Number: US-US-EMD SERONO, INC.-7165836

PATIENT
  Age: 51 Year
  Sex: Female

DRUGS (3)
  1. REBIF [Suspect]
     Indication: PRODUCT USED FOR UNKNOWN INDICATION
     Route: 058
     Dates: start: 20091210
  2. REBIF [Suspect]
     Route: 058
  3. VITAMIN D [Concomitant]

REACTIONS (6)
  - Alopecia [Recovering/Resolving]
  - Fall [Unknown]
  - Joint swelling [Not Recovered/Not Resolved]
  - Amnesia [Not Recovered/Not Resolved]
  - Hypertension [Not Recovered/Not Resolved]
  - Gait disturbance [Not Recovered/Not Resolved]
